FAERS Safety Report 7393177-X (Version None)
Quarter: 2011Q2

REPORT INFORMATION
  Report Type: 
  Country: None (occurrence: None)
  Receive Date: 20110404
  Receipt Date: 20110321
  Transmission Date: 20111010
  Serious: Yes (Other)
  Sender: FDA-Public Use
  Company Number: US-MYLANLABS-2011S1006714

PATIENT

DRUGS (2)
  1. MELPHALAN [Suspect]
     Indication: MALIGNANT MELANOMA
  2. INVESTIGATIONAL DRUG [Suspect]
     Indication: MALIGNANT MELANOMA
     Route: 042

REACTIONS (2)
  - ARTERIAL INJURY [None]
  - AMPUTATION [None]
